FAERS Safety Report 9382317 (Version 2)
Quarter: 2014Q1

REPORT INFORMATION
  Report Type: Spontaneous
  Country: FR (occurrence: FR)
  Receive Date: 20130703
  Receipt Date: 20140128
  Transmission Date: 20141002
  Serious: Yes (Hospitalization)
  Sender: FDA-Public Use
  Company Number: FR-ASTRAZENECA-2013SE48968

PATIENT
  Age: 20176 Day
  Sex: Female
  Weight: 70 kg

DRUGS (9)
  1. XEROQUEL [Suspect]
     Indication: BIPOLAR DISORDER
     Route: 048
     Dates: start: 20130611, end: 20130613
  2. XEROQUEL [Suspect]
     Indication: BIPOLAR DISORDER
     Route: 048
     Dates: start: 20130614, end: 20130620
  3. STILNOX [Suspect]
     Indication: INSOMNIA
     Route: 048
     Dates: start: 20130605, end: 20130614
  4. TERCIAN [Suspect]
     Indication: DELIRIUM
     Route: 048
     Dates: start: 20130617, end: 20130620
  5. RISPERDAL [Suspect]
     Indication: MANIA
     Dosage: 2 MG AND THEN 4 MG PER DAY
     Route: 048
     Dates: start: 20130619, end: 20130620
  6. TRANSIPEG [Concomitant]
  7. DIFFU K [Concomitant]
     Indication: HYPOKALAEMIA
     Route: 048
     Dates: start: 20130605, end: 20130620
  8. SPECIAFOLDINE [Concomitant]
     Indication: FOLATE DEFICIENCY
     Route: 048
     Dates: start: 20130605, end: 20130620
  9. AVLOCARDYL [Concomitant]
     Indication: TACHYCARDIA
     Route: 048
     Dates: start: 20130605, end: 20130620

REACTIONS (15)
  - Fall [Recovered/Resolved]
  - Agitation [Unknown]
  - Clonus [Recovered/Resolved]
  - Delirium [Unknown]
  - Abnormal behaviour [Recovered/Resolved]
  - Unresponsive to stimuli [Recovered/Resolved]
  - Haematoma [Unknown]
  - Altered state of consciousness [Unknown]
  - Coma scale abnormal [Recovered/Resolved]
  - Insomnia [Unknown]
  - Hypervigilance [Recovered/Resolved]
  - Confusional state [Recovered/Resolved]
  - Nightmare [Unknown]
  - Somnolence [Recovered/Resolved]
  - Somnambulism [Recovered/Resolved]
